FAERS Safety Report 7388793-5 (Version None)
Quarter: 2011Q2

REPORT INFORMATION
  Report Type: 
  Country: None (occurrence: None)
  Receive Date: 20110401
  Receipt Date: 20110307
  Transmission Date: 20111010
  Serious: No
  Sender: FDA-Public Use
  Company Number: US-B.I. PHARMACEUTICALS,INC./RIDGEFIELD-2011-BP-07142BP

PATIENT
  Sex: Female

DRUGS (9)
  1. AMIODARONE [Concomitant]
     Indication: ATRIAL FIBRILLATION
     Dosage: 200 MG
     Route: 048
  2. ATENOLOL [Concomitant]
     Indication: HYPERTENSION
     Dosage: 50 MG
     Route: 048
  3. HYZAR [Concomitant]
     Indication: FLUID RETENTION
     Route: 048
  4. FISH OIL [Concomitant]
     Indication: PROPHYLAXIS
     Dosage: 2000 MG
     Route: 048
  5. GLUCOSAMINE [Concomitant]
     Indication: PROPHYLAXIS
     Route: 048
  6. SIMVASTATIN [Concomitant]
     Indication: BLOOD CHOLESTEROL INCREASED
     Dosage: 10 MG
     Route: 048
  7. ALDACTONE [Concomitant]
     Indication: FLUID RETENTION
     Route: 048
  8. PRADAXA [Suspect]
     Indication: ATRIAL FIBRILLATION
     Dosage: 300 MG
     Route: 048
     Dates: start: 20110221
  9. CELEBREX [Concomitant]
     Indication: ARTHRITIS
     Dosage: 200 MG
     Route: 048

REACTIONS (1)
  - OEDEMA PERIPHERAL [None]
